FAERS Safety Report 10026184 (Version 2)
Quarter: 2014Q1

REPORT INFORMATION
  Report Type: Spontaneous
  Country: US (occurrence: US)
  Receive Date: 20140320
  Receipt Date: 20140320
  Transmission Date: 20141002
  Serious: No
  Sender: FDA-Public Use
  Company Number: US-ALLERGAN-1317015US

PATIENT
  Age: 93 Year
  Sex: Female

DRUGS (2)
  1. LUMIGAN 0.01% [Suspect]
     Indication: GLAUCOMA
     Dosage: 1 GTT, QHS
     Route: 047
     Dates: end: 20131027
  2. PATADAY [Concomitant]
     Indication: HYPERSENSITIVITY
     Dosage: 2 GTT, PRN
     Route: 047

REACTIONS (3)
  - Expired drug administered [Unknown]
  - Eyelids pruritus [Recovering/Resolving]
  - Eyelids pruritus [Recovering/Resolving]
